FAERS Safety Report 15755673 (Version 2)
Quarter: 2019Q1

REPORT INFORMATION
  Report Type: Report from Study
  Country: US (occurrence: US)
  Receive Date: 20181224
  Receipt Date: 20190225
  Transmission Date: 20190417
  Serious: No
  Sender: FDA-Public Use
  Company Number: PHEH2018US053473

PATIENT
  Sex: Female

DRUGS (1)
  1. COSENTYX [Suspect]
     Active Substance: SECUKINUMAB
     Indication: PRODUCT USED FOR UNKNOWN INDICATION
     Route: 065

REACTIONS (13)
  - Hypersensitivity [Unknown]
  - Dry skin [Unknown]
  - Dysuria [Unknown]
  - Pain in extremity [Unknown]
  - Insomnia [Unknown]
  - Throat irritation [Unknown]
  - Muscle spasms [Unknown]
  - Pruritus [Unknown]
  - Abdominal discomfort [Unknown]
  - Discomfort [Unknown]
  - Skin burning sensation [Unknown]
  - Dry throat [Unknown]
  - Visual impairment [Unknown]
